FAERS Safety Report 6886882-2 (Version None)
Quarter: 2010Q3

REPORT INFORMATION
  Report Type: 
  Country: None (occurrence: None)
  Receive Date: 20100730
  Receipt Date: 20100720
  Transmission Date: 20110219
  Serious: Yes (Hospitalization)
  Sender: FDA-Public Use
  Company Number: FR-WYE-G06426910

PATIENT
  Sex: Female

DRUGS (6)
  1. EFFEXOR XR [Suspect]
     Indication: DEPRESSION
     Route: 048
     Dates: start: 20100413, end: 20100616
  2. ZOLPIDEM [Concomitant]
     Route: 048
     Dates: start: 20100401
  3. GYNO-PEVARYL [Suspect]
     Dosage: 1 VAGINAL SUPPOSITORY
     Route: 067
     Dates: start: 20100601, end: 20100601
  4. NEXIUM [Concomitant]
     Route: 048
     Dates: start: 20100401
  5. TEGRETOL - SLOW RELEASE [Suspect]
     Indication: MYOCLONUS
     Route: 048
     Dates: start: 20100415, end: 20100615
  6. ISOPTIN [Suspect]
     Indication: HYPERTENSION
     Route: 048
     Dates: start: 20100413, end: 20100616

REACTIONS (5)
  - C-REACTIVE PROTEIN INCREASED [None]
  - GRANULOCYTOSIS [None]
  - HEPATIC ENZYME INCREASED [None]
  - SKIN EXFOLIATION [None]
  - URTICARIA [None]
